FAERS Safety Report 18537612 (Version 2)
Quarter: 2020Q4

REPORT INFORMATION
  Report Type: Spontaneous
  Country: US (occurrence: US)
  Receive Date: 20201123
  Receipt Date: 20201214
  Transmission Date: 20210114
  Serious: Yes (Death, Hospitalization, Other)
  Sender: FDA-Public Use
  Company Number: US-009507513-2011USA010439

PATIENT
  Sex: Female

DRUGS (1)
  1. KEYTRUDA [Suspect]
     Active Substance: PEMBROLIZUMAB
     Dosage: UNK
     Route: 042
     Dates: start: 20191202

REACTIONS (5)
  - Pulmonary thrombosis [Unknown]
  - Diabetic ketoacidosis [Unknown]
  - Death [Fatal]
  - Lymphoedema [Unknown]
  - Skin mass [Unknown]

NARRATIVE: CASE EVENT DATE: 201912
